FAERS Safety Report 13731424 (Version 1)
Quarter: 2017Q3

REPORT INFORMATION
  Report Type: Spontaneous
  Country: US (occurrence: US)
  Receive Date: 20170707
  Receipt Date: 20170707
  Transmission Date: 20171127
  Serious: No
  Sender: FDA-Public Use
  Company Number: GXBR2017US001511

PATIENT
  Sex: Female
  Weight: 14.06 kg

DRUGS (1)
  1. TRIMETHOPRIM/POLYMYXIN B [Suspect]
     Active Substance: POLYMYXIN B SULFATE\TRIMETHOPRIM
     Indication: CONJUNCTIVITIS
     Dosage: 1 GTT OU, Q6H
     Route: 047

REACTIONS (1)
  - Instillation site vesicles [Not Recovered/Not Resolved]
